FAERS Safety Report 24787145 (Version 3)
Quarter: 2025Q1

REPORT INFORMATION
  Report Type: Report from Study
  Country: US (occurrence: US)
  Receive Date: 20241230
  Receipt Date: 20250116
  Transmission Date: 20250409
  Serious: Yes (Other)
  Sender: AMGEN
  Company Number: US-AMGEN-USASP2024253458

PATIENT
  Age: 79 Year
  Sex: Male

DRUGS (24)
  1. REPATHA [Suspect]
     Active Substance: EVOLOCUMAB
     Indication: Hyperlipidaemia
     Dosage: 140 MILLIGRAM PER MILLILITRE, Q2WK
     Route: 058
  2. REPATHA [Suspect]
     Active Substance: EVOLOCUMAB
     Dosage: 140 MILLIGRAM PER MILLILITRE, Q2WK
     Route: 058
  3. NOVOLOG [Concomitant]
     Active Substance: INSULIN ASPART
     Indication: Diabetes mellitus
  4. TRESIBA [Concomitant]
     Active Substance: INSULIN DEGLUDEC
     Indication: Diabetes mellitus
     Route: 058
  5. LYSINE [Concomitant]
     Active Substance: LYSINE
  6. COD LIVER OIL [Concomitant]
     Active Substance: COD LIVER OIL
  7. FINASTERIDE [Concomitant]
     Active Substance: FINASTERIDE
  8. METOPROLOL SUCCINATE [Concomitant]
     Active Substance: METOPROLOL SUCCINATE
  9. ELIQUIS [Concomitant]
     Active Substance: APIXABAN
  10. OZEMPIC [Concomitant]
     Active Substance: SEMAGLUTIDE
     Route: 058
  11. VITAMIN E [Concomitant]
     Active Substance: .ALPHA.-TOCOPHEROL
  12. VITAMIN D3 [Concomitant]
     Active Substance: CHOLECALCIFEROL
  13. VITAMIN C [Concomitant]
     Active Substance: ASCORBIC ACID
  14. VITAMIN B12 [Concomitant]
     Active Substance: CYANOCOBALAMIN
  15. ring cushion [Concomitant]
  16. OMEPRAZOLE [Concomitant]
     Active Substance: OMEPRAZOLE
  17. NOVOLOG [Concomitant]
     Active Substance: INSULIN ASPART
     Route: 058
  18. METRONIDAZOLE [Concomitant]
     Active Substance: METRONIDAZOLE
  19. FUROSEMIDE [Concomitant]
     Active Substance: FUROSEMIDE
  20. FIBER LAXATIVE [Concomitant]
  21. FERROUS SULFATE [Concomitant]
     Active Substance: FERROUS SULFATE
  22. ENTRESTO [Concomitant]
     Active Substance: SACUBITRIL\VALSARTAN
  23. AZATHIOPRINE [Concomitant]
     Active Substance: AZATHIOPRINE
  24. ASPIRIN [Concomitant]
     Active Substance: ASPIRIN

REACTIONS (28)
  - Chronic kidney disease [Unknown]
  - Colitis ulcerative [Unknown]
  - Cardiac failure congestive [Unknown]
  - Dilated cardiomyopathy [Unknown]
  - Blood test abnormal [Unknown]
  - Device difficult to use [Unknown]
  - Inappropriate schedule of product administration [Unknown]
  - Drug dose omission by device [Unknown]
  - Wrong technique in product usage process [Unknown]
  - Fall [Unknown]
  - Implantable defibrillator insertion [Unknown]
  - Hypotension [Unknown]
  - Dyspnoea exertional [Unknown]
  - Balance disorder [Unknown]
  - Anaemia [Unknown]
  - Benign prostatic hyperplasia [Unknown]
  - Diabetic neuropathy [Unknown]
  - Gastrooesophageal reflux disease [Unknown]
  - Hypertensive heart disease [Unknown]
  - Monoclonal gammopathy [Unknown]
  - Insomnia [Unknown]
  - Cognitive disorder [Unknown]
  - Obesity [Unknown]
  - Obstructive sleep apnoea syndrome [Unknown]
  - Hyperparathyroidism secondary [Unknown]
  - Type V hyperlipidaemia [Unknown]
  - Fatigue [Unknown]
  - Arthralgia [Unknown]

NARRATIVE: CASE EVENT DATE: 20241224
